FAERS Safety Report 14478342 (Version 2)
Quarter: 2018Q3

REPORT INFORMATION
  Report Type: Report from Study
  Country: None (occurrence: US)
  Receive Date: 20180202
  Receipt Date: 20180808
  Transmission Date: 20181010
  Serious: Yes (Other)
  Sender: FDA-Public Use
  Company Number: US-ABBVIE-18K-163-2238910-00

PATIENT
  Age: 47 Year
  Sex: Female

DRUGS (4)
  1. PLAQUENIL [Concomitant]
     Active Substance: HYDROXYCHLOROQUINE SULFATE
     Indication: PRODUCT USED FOR UNKNOWN INDICATION
     Dates: start: 201712
  2. HUMIRA [Suspect]
     Active Substance: ADALIMUMAB
     Indication: PSORIASIS
  3. HUMIRA [Suspect]
     Active Substance: ADALIMUMAB
     Indication: COLITIS ULCERATIVE
     Route: 058
  4. HUMIRA [Suspect]
     Active Substance: ADALIMUMAB
     Indication: PSORIATIC ARTHROPATHY

REACTIONS (17)
  - Gait disturbance [Unknown]
  - Increased tendency to bruise [Unknown]
  - Psoriasis [Recovered/Resolved]
  - Eye contusion [Unknown]
  - Psoriatic arthropathy [Recovering/Resolving]
  - Contusion [Unknown]
  - Diverticulitis [Unknown]
  - Rosacea [Unknown]
  - Upper respiratory tract infection [Recovering/Resolving]
  - Systemic lupus erythematosus [Unknown]
  - Coeliac disease [Unknown]
  - Polyp [Unknown]
  - Crohn^s disease [Unknown]
  - Sensitivity to weather change [Recovering/Resolving]
  - Peripheral swelling [Unknown]
  - Unevaluable event [Unknown]
  - Pain in extremity [Not Recovered/Not Resolved]

NARRATIVE: CASE EVENT DATE: 2018
